FAERS Safety Report 25908648 (Version 1)
Quarter: 2025Q4

REPORT INFORMATION
  Report Type: Report from Study
  Country: US (occurrence: US)
  Receive Date: 20251010
  Receipt Date: 20251010
  Transmission Date: 20260118
  Serious: Yes (Other)
  Sender: ABBVIE
  Company Number: US-ABBVIE-6493001

PATIENT
  Age: 73 Year
  Sex: Male

DRUGS (1)
  1. CREON [Suspect]
     Active Substance: PANCRELIPASE AMYLASE\PANCRELIPASE LIPASE\PANCRELIPASE PROTEASE
     Indication: Product used for unknown indication
     Route: 048
     Dates: start: 20230301

REACTIONS (10)
  - Coronary artery bypass [Unknown]
  - Pain in extremity [Not Recovered/Not Resolved]
  - Bowel movement irregularity [Recovered/Resolved]
  - Lyme disease [Unknown]
  - Device failure [Unknown]
  - Scar [Not Recovered/Not Resolved]
  - Chest pain [Not Recovered/Not Resolved]
  - Arthropod bite [Unknown]
  - Burning sensation [Not Recovered/Not Resolved]
  - Paraesthesia [Not Recovered/Not Resolved]

NARRATIVE: CASE EVENT DATE: 20250601
